FAERS Safety Report 8369070-2 (Version None)
Quarter: 2012Q2

REPORT INFORMATION
  Report Type: 
  Country: None (occurrence: None)
  Receive Date: 20120516
  Receipt Date: 20120516
  Transmission Date: 20120825
  Serious: Yes (Other)
  Sender: FDA-Public Use
  Company Number: None

PATIENT
  Age: 65 Year
  Sex: Male
  Weight: 82.4 kg

DRUGS (1)
  1. NULOJIX [Suspect]
     Indication: RENAL TRANSPLANT
     Dosage: 812.5MG IN 250ML NS OVER 30 MIN IV DRIP
     Route: 041
     Dates: start: 20120513, end: 20120513

REACTIONS (1)
  - CARDIAC FLUTTER [None]
